FAERS Safety Report 18713414 (Version 2)
Quarter: 2021Q1

REPORT INFORMATION
  Report Type: Spontaneous
  Country: US (occurrence: US)
  Receive Date: 20210107
  Receipt Date: 20210301
  Transmission Date: 20210419
  Serious: Yes (Hospitalization)
  Sender: FDA-Public Use
  Company Number: US-ELI_LILLY_AND_COMPANY-US202012014043

PATIENT
  Age: 88 Year
  Sex: Male
  Weight: 61.2 kg

DRUGS (19)
  1. MULTIPLE VITAMIN [Concomitant]
     Active Substance: VITAMINS
  2. ACETAMINOPHEN. [Concomitant]
     Active Substance: ACETAMINOPHEN
  3. VITAMIN B COMPLEX [Concomitant]
     Active Substance: CYANOCOBALAMIN\DEXPANTHENOL\NIACINAMIDE\PYRIDOXINE HYDROCHLORIDE\RIBOFLAVIN 5^-PHOSPHATE SODIUM\THIAMINE HYDROCHLORIDE\VITAMIN B COMPLEX
  4. DILTIAZEM. [Concomitant]
     Active Substance: DILTIAZEM
  5. LEVOTHYROXINE. [Concomitant]
     Active Substance: LEVOTHYROXINE
  6. LISINOPRIL. [Concomitant]
     Active Substance: LISINOPRIL
  7. OMEPRAZOLE. [Concomitant]
     Active Substance: OMEPRAZOLE
  8. VITAMIN C [Concomitant]
     Active Substance: ASCORBIC ACID
  9. CALCIUM [Concomitant]
     Active Substance: CALCIUM
  10. SIMVASTATIN. [Concomitant]
     Active Substance: SIMVASTATIN
  11. VITAMIN D [COLECALCIFEROL] [Concomitant]
     Active Substance: CHOLECALCIFEROL
  12. METFORMIN [Concomitant]
     Active Substance: METFORMIN HYDROCHLORIDE
  13. IMDUR [Concomitant]
     Active Substance: ISOSORBIDE MONONITRATE
  14. ALLOPURINOL. [Concomitant]
     Active Substance: ALLOPURINOL
  15. ACETYLSALICYLIC ACID [Concomitant]
     Active Substance: ASPIRIN
  16. WARFARIN [Concomitant]
     Active Substance: WARFARIN
  17. BAMLANIVIMAB 700MG [Suspect]
     Active Substance: BAMLANIVIMAB
     Indication: COVID-19
     Dosage: 700 MG, SINGLE
     Route: 041
     Dates: start: 20201221, end: 20201221
  18. TORSEMIDE. [Concomitant]
     Active Substance: TORSEMIDE
     Indication: SWELLING
     Dosage: UNK, PRN
  19. COUMADIN [Concomitant]
     Active Substance: WARFARIN SODIUM
     Indication: ATRIAL FIBRILLATION

REACTIONS (1)
  - Hypoxia [Recovered/Resolved]

NARRATIVE: CASE EVENT DATE: 20201221
